FAERS Safety Report 15591772 (Version 8)
Quarter: 2023Q4

REPORT INFORMATION
  Report Type: Spontaneous
  Country: FR (occurrence: FR)
  Receive Date: 20181107
  Receipt Date: 20231228
  Transmission Date: 20240110
  Serious: Yes (Hospitalization, Other)
  Sender: FDA-Public Use
  Company Number: FR-EMA-20150603-AUTODUP-439157

PATIENT
  Age: 34 Year
  Sex: Female

DRUGS (57)
  1. MORPHINE SULFATE [Suspect]
     Active Substance: MORPHINE SULFATE
     Indication: Analgesic therapy
     Dosage: 2 MG, DAILY (2 MG, QID)
     Route: 008
  2. MORPHINE SULFATE [Suspect]
     Active Substance: MORPHINE SULFATE
     Indication: Epidural analgesia
     Dosage: 2 MILLIGRAM, Q6H (2 MG,QID)
     Route: 008
  3. MORPHINE SULFATE [Suspect]
     Active Substance: MORPHINE SULFATE
     Dosage: 2 MILLIGRAM, QID
     Route: 008
  4. ADRENALIN [Suspect]
     Active Substance: EPINEPHRINE
     Indication: Epidural anaesthesia
     Dosage: 15 ML OF LIDOCAINE 20MG/ML WITH ADRENALIN
     Route: 065
  5. ADRENALIN [Suspect]
     Active Substance: EPINEPHRINE
     Indication: Anaesthesia
     Dosage: 1 DOSAGE FORM (1 DF, UNK )
     Route: 008
  6. ADRENALIN [Suspect]
     Active Substance: EPINEPHRINE
     Dosage: 1 DF, UNK
     Route: 065
  7. ADRENALIN [Suspect]
     Active Substance: EPINEPHRINE
     Dosage: DOSE DESCRIPTION : 15 ML,TOTAL, (BN-ADRENALIN)
     Route: 008
  8. ADRENALIN [Suspect]
     Active Substance: EPINEPHRINE
     Dosage: 15 ML OF LIDOCAINE 20MG/ML WITH ADRENALIN
     Route: 065
  9. ADRENALIN [Suspect]
     Active Substance: EPINEPHRINE
     Dosage: 2 MG, QD
     Route: 008
  10. ADRENALIN [Suspect]
     Active Substance: EPINEPHRINE
     Dosage: 1 DF, UNK
     Route: 008
  11. KETOPROFEN [Suspect]
     Active Substance: KETOPROFEN
     Indication: Analgesic therapy
     Dosage: 50 MG, DAILY (50 MG, QID)
     Route: 048
  12. KETOPROFEN [Suspect]
     Active Substance: KETOPROFEN
     Indication: Pain
     Dosage: 200 MG,QD
     Route: 048
  13. KETOPROFEN [Suspect]
     Active Substance: KETOPROFEN
     Dosage: 50 MG,QID
     Route: 048
  14. KETOPROFEN [Suspect]
     Active Substance: KETOPROFEN
     Dosage: 50 MILLIGRAM, QID
     Route: 008
  15. KETOPROFEN [Suspect]
     Active Substance: KETOPROFEN
     Dosage: 50 MG, QID
     Route: 048
  16. NEFOPAM [Suspect]
     Active Substance: NEFOPAM
     Indication: Analgesic therapy
     Dosage: 40 MILLIGRAM, DAILY (40 MG, QID)
     Route: 048
  17. NEFOPAM [Suspect]
     Active Substance: NEFOPAM
     Dosage: 4 MILLIGRAM, QID (40 MG X 4/24 HOURS
     Route: 048
  18. NEFOPAM [Suspect]
     Active Substance: NEFOPAM
     Dosage: DOSE DESCRIPTION : 40 MG,QID4 TIMES A DAY
     Route: 048
  19. NEFOPAM [Suspect]
     Active Substance: NEFOPAM
     Dosage: 40 MG, QID
     Route: 048
  20. NEFOPAM [Suspect]
     Active Substance: NEFOPAM
     Dosage: 40 MG, QID
     Route: 065
  21. ACETAMINOPHEN [Suspect]
     Active Substance: ACETAMINOPHEN
     Indication: Analgesic therapy
     Dosage: DOSE DESCRIPTION : 1 G,QID4 TIMES A DAY
     Route: 048
  22. ACETAMINOPHEN [Suspect]
     Active Substance: ACETAMINOPHEN
     Dosage: 4 G, QID
     Route: 048
  23. ACETAMINOPHEN [Suspect]
     Active Substance: ACETAMINOPHEN
     Dosage: 1 MILLIGRAM, QID (1 MG X 4/24 HOURS)
     Route: 048
  24. ACETAMINOPHEN [Suspect]
     Active Substance: ACETAMINOPHEN
     Dosage: 1 GRAM, Q6H (1 G,QID)
     Route: 048
  25. ACETAMINOPHEN [Suspect]
     Active Substance: ACETAMINOPHEN
     Dosage: 1 GRAM, Q6H (1 G,QID)
     Route: 048
  26. ACETAMINOPHEN [Suspect]
     Active Substance: ACETAMINOPHEN
     Dosage: 1 G,QID
     Route: 048
  27. ACETAMINOPHEN [Suspect]
     Active Substance: ACETAMINOPHEN
     Dosage: 1 G, QID
     Route: 048
  28. ACETAMINOPHEN [Suspect]
     Active Substance: ACETAMINOPHEN
     Dosage: 1 G, QID
     Route: 048
  29. ACETAMINOPHEN [Suspect]
     Active Substance: ACETAMINOPHEN
     Dosage: 4 G, QID
     Route: 048
  30. LIDOCAINE [Suspect]
     Active Substance: LIDOCAINE
     Indication: Spinal pain
     Dosage: 15 ML OF LIDOCAINE 20MG/ML WITH ADRENALIN
     Route: 008
  31. LIDOCAINE [Suspect]
     Active Substance: LIDOCAINE
     Indication: Epidural anaesthesia
     Dosage: DOSE DESCRIPTION : 300 MG,TOTAL
     Route: 008
  32. LIDOCAINE [Suspect]
     Active Substance: LIDOCAINE
     Indication: Anaesthesia
     Dosage: 2 MILLIGRAM, DAILY (15 ML OF LIDOCAINE 20MG/ML WITH ADRENALIN)
     Route: 008
  33. LIDOCAINE [Suspect]
     Active Substance: LIDOCAINE
     Indication: Epidural analgesia
     Dosage: 15 ML OF 20 MG/ML LIDOCAINE WITH EPINEPHRINE
     Route: 008
  34. LIDOCAINE [Suspect]
     Active Substance: LIDOCAINE
     Dosage: 15 ML, UNK
     Route: 065
  35. LIDOCAINE [Suspect]
     Active Substance: LIDOCAINE
     Dosage: 15 ML OF LIDOCAINE 20MG/ML WITH ADRENALIN
     Route: 008
  36. LIDOCAINE [Suspect]
     Active Substance: LIDOCAINE
     Dosage: 20 MG/ML, (15 ML OF LIDOCAINE 20MG/ML WITH ADRENALIN)
     Route: 065
  37. LIDOCAINE [Suspect]
     Active Substance: LIDOCAINE
     Dosage: 300 MG, TOTAL
     Route: 008
  38. SUFENTANIL [Suspect]
     Active Substance: SUFENTANIL
     Indication: Epidural anaesthesia
     Dosage: DOSE DESCRIPTION : 5 UG, UNK20 ML OF A SOLUTION OF 1 MG/ML ROPIVACAINE AND 0.25 ?G/ML SUFENTANIL FR
     Route: 008
  39. SUFENTANIL [Suspect]
     Active Substance: SUFENTANIL
     Indication: Spinal pain
     Dosage: 20ML SOL OF 1MG/ML ROPIVACAINE AND 0.25MICROG/ML SUFENTANIL AND 8ML BOLUS OF SAME....
     Route: 008
  40. SUFENTANIL [Suspect]
     Active Substance: SUFENTANIL
     Indication: Anaesthesia
     Dosage: 5 UG,TOTAL
     Route: 008
  41. SUFENTANIL [Suspect]
     Active Substance: SUFENTANIL
     Dosage: 5 UG, UNK
     Route: 008
  42. SUFENTANIL [Suspect]
     Active Substance: SUFENTANIL
     Dosage: 0.25 UG/ML, UNK (20 ML OF A SOLUTION OF 1 MG/ML ROPIVACAINE AN0.25 ?G/ML SUFENTANIL)
     Route: 008
  43. ENOXAPARIN [Suspect]
     Active Substance: ENOXAPARIN
     Indication: Thrombosis prophylaxis
     Dosage: 40 MG,QD1 TIMES A DAY
     Route: 058
  44. ENOXAPARIN [Suspect]
     Active Substance: ENOXAPARIN
     Indication: Thrombosis prophylaxis
     Dosage: 40 MG, QD
     Route: 058
  45. ROPIVACAINE [Suspect]
     Active Substance: ROPIVACAINE
     Indication: Anaesthesia
     Dosage: 20 ML OF A SOLUTION OF 1 MG/ML ROPIVACAINE AND 0.25 ?G/ML SUFENTANIL
     Route: 008
  46. ROPIVACAINE [Suspect]
     Active Substance: ROPIVACAINE
     Indication: Pain
     Dosage: 20ML SOL OF 1MG/ML ROPIVACAINE AND 0.25MICROG/ML SUFENTANIL AND 8ML BOLUS OF SAME....
     Route: 008
  47. ROPIVACAINE [Suspect]
     Active Substance: ROPIVACAINE
     Indication: Epidural anaesthesia
     Dosage: 20 ML,TOTAL20 ML OF A SOLUTION OF 1 MG/ML ROPIVACAINE AND 0.25 ?G/ML SUFENTANIL
     Route: 008
  48. ROPIVACAINE [Suspect]
     Active Substance: ROPIVACAINE
     Indication: Epidural analgesia
     Dosage: 15 ML,UNK
     Route: 065
  49. ROPIVACAINE [Suspect]
     Active Substance: ROPIVACAINE
     Indication: Spinal pain
     Dosage: 20 MG, UNK
     Route: 008
  50. ROPIVACAINE [Suspect]
     Active Substance: ROPIVACAINE
     Dosage: 1 MG/ML, UNK (20 ML OF A SOLUTION OF 1 MG/ML ROPIVACAINE AND 0.25 ?G/ML SUFENTANIL)
     Route: 008
  51. ASPIRIN [Suspect]
     Active Substance: ASPIRIN
     Indication: Product used for unknown indication
     Dosage: UNK
     Route: 065
  52. ASPIRIN [Suspect]
     Active Substance: ASPIRIN
     Dosage: UNK
     Route: 065
  53. ASPIRIN [Suspect]
     Active Substance: ASPIRIN
     Indication: Product used for unknown indication
     Dosage: UNK
     Route: 065
  54. ASPIRIN [Suspect]
     Active Substance: ASPIRIN
     Dosage: UNK
     Route: 065
  55. MORPHINE HYDROCHLORIDE [Suspect]
     Active Substance: MORPHINE HYDROCHLORIDE
     Indication: Analgesic therapy
     Dosage: 2 MG,QID
     Route: 008
  56. EPINEPHRINE [Suspect]
     Active Substance: EPINEPHRINE
     Indication: Anaesthesia
     Dosage: 15 ML,TOTAL, (BN-ADRENALIN)
     Route: 008
  57. ENOXAPARIN [Concomitant]
     Active Substance: ENOXAPARIN
     Indication: Thrombosis prophylaxis
     Dosage: 40 MG, QD
     Route: 058

REACTIONS (14)
  - Epidural haemorrhage [Recovered/Resolved]
  - Foetal heart rate abnormal [Recovering/Resolving]
  - Epidural analgesia [Recovering/Resolving]
  - Paraesthesia [Recovered/Resolved]
  - Live birth [Unknown]
  - Peripheral nerve injury [Recovered/Resolved]
  - Neuropathy peripheral [Recovered/Resolved]
  - Gait disturbance [Recovered/Resolved]
  - Maternal exposure during pregnancy [Recovered/Resolved]
  - Spinal epidural haemorrhage [Recovered/Resolved]
  - Paraesthesia [Recovered/Resolved]
  - Nervous system disorder [Recovered/Resolved]
  - Epistaxis [Unknown]
  - Product use issue [Unknown]
